FAERS Safety Report 19906420 (Version 1)
Quarter: 2021Q4

REPORT INFORMATION
  Report Type: Spontaneous
  Country: US (occurrence: US)
  Receive Date: 20211001
  Receipt Date: 20211001
  Transmission Date: 20220303
  Serious: Yes (Hospitalization)
  Sender: FDA-Public Use
  Company Number: None

PATIENT
  Age: 46 Year
  Sex: Male
  Weight: 74.9 kg

DRUGS (6)
  1. MERCAPTOPURINE [Suspect]
     Active Substance: MERCAPTOPURINE
     Dates: end: 20200530
  2. METHOTREXATE [Suspect]
     Active Substance: METHOTREXATE
     Dates: end: 20200525
  3. PREDNISONE [Suspect]
     Active Substance: PREDNISONE
     Dates: end: 20200522
  4. VINCRISTINE [Suspect]
     Active Substance: VINCRISTINE
     Dates: end: 20200518
  5. REMDESIVIR [Concomitant]
     Active Substance: REMDESIVIR
  6. COVID-19 CONVALESCENT PLASMA [Concomitant]
     Active Substance: COVID-19 CONVALESCENT PLASMA

REACTIONS (11)
  - Back pain [None]
  - Headache [None]
  - White blood cell count decreased [None]
  - Dyspnoea [None]
  - Cough [None]
  - Pneumonia viral [None]
  - Neutropenia [None]
  - Respiratory failure [None]
  - Wound [None]
  - Depression [None]
  - Blood pressure increased [None]

NARRATIVE: CASE EVENT DATE: 20200526
